FAERS Safety Report 11844778 (Version 1)
Quarter: 2015Q4

REPORT INFORMATION
  Report Type: Spontaneous
  Country: US (occurrence: None)
  Receive Date: 20151216
  Receipt Date: 20151216
  Transmission Date: 20160305
  Serious: Yes (Other)
  Sender: FDA-Public Use
  Company Number: None

PATIENT
  Age: 48 Year
  Sex: Female

DRUGS (13)
  1. SERZONE [Concomitant]
     Active Substance: NEFAZODONE HYDROCHLORIDE
  2. CLONAZEPAM. [Concomitant]
     Active Substance: CLONAZEPAM
  3. PROMETHAZINE [Concomitant]
     Active Substance: PROMETHAZINE\PROMETHAZINE HYDROCHLORIDE
  4. OXYCODONE [Concomitant]
     Active Substance: OXYCODONE
  5. DEXAMETHASONE. [Concomitant]
     Active Substance: DEXAMETHASONE
  6. ZECUITY [Suspect]
     Active Substance: SUMATRIPTAN SUCCINATE
     Indication: MIGRAINE
     Dosage: 6.5 MG BID PRN TOPICAL PATCH
     Route: 061
     Dates: start: 20151020, end: 20151202
  7. CYCLOBENZAPRINE [Concomitant]
     Active Substance: CYCLOBENZAPRINE
  8. TORADOL [Concomitant]
     Active Substance: KETOROLAC TROMETHAMINE
  9. LAMICTAL [Concomitant]
     Active Substance: LAMOTRIGINE
  10. FIORICET [Concomitant]
     Active Substance: ACETAMINOPHEN\BUTALBITAL\CAFFEINE
  11. BENADRYL [Concomitant]
     Active Substance: DIPHENHYDRAMINE HYDROCHLORIDE
  12. ZECUITY [Suspect]
     Active Substance: SUMATRIPTAN SUCCINATE
  13. 1-METHYLFOLATE [Concomitant]

REACTIONS (3)
  - Application site erythema [None]
  - Application site burn [None]
  - Application site pruritus [None]

NARRATIVE: CASE EVENT DATE: 20151021
